FAERS Safety Report 5716868-2 (Version None)
Quarter: 2008Q2

REPORT INFORMATION
  Report Type: 
  Country: None (occurrence: None)
  Receive Date: 20080424
  Receipt Date: 20080410
  Transmission Date: 20081010
  Serious: Yes (Death, Hospitalization)
  Sender: FDA-Public Use
  Company Number: GB-AMGEN-UK265805

PATIENT
  Sex: Female

DRUGS (25)
  1. MIMPARA [Suspect]
     Indication: HYPERPARATHYROIDISM SECONDARY
     Route: 048
     Dates: start: 20071207, end: 20080204
  2. BALNEUM [Concomitant]
  3. CABERGOLINE [Concomitant]
  4. CHLORPHENIRAMINE MALEATE [Concomitant]
  5. CLONAZEPAM [Concomitant]
  6. ACETAMINOPHEN W/ CODEINE [Concomitant]
  7. DIFFLAM [Concomitant]
  8. E45 [Concomitant]
  9. EMLA [Concomitant]
  10. ALUMINUM HYDROXIDE GEL [Concomitant]
  11. AMLODIPINE [Concomitant]
  12. ASPIRIN [Concomitant]
  13. TRAMADOL HCL [Concomitant]
  14. SENNA [Concomitant]
  15. SIMVASTATIN [Concomitant]
  16. ORUVAIL [Concomitant]
  17. QUININE SULFATE [Concomitant]
  18. RENAGEL [Concomitant]
  19. FOLIC ACID [Concomitant]
  20. GABAPENTIN [Concomitant]
  21. GLICLAZIDE [Concomitant]
  22. HYDROXOCOBALAMIN [Concomitant]
  23. LISINOPRIL [Concomitant]
  24. BENZOCAINE [Concomitant]
     Route: 048
  25. FRAGMIN [Concomitant]
     Route: 065

REACTIONS (1)
  - PULMONARY EMBOLISM [None]
